FAERS Safety Report 8844181 (Version 1)
Quarter: 2012Q4

REPORT INFORMATION
  Report Type: 
  Country: US (occurrence: US)
  Receive Date: 20121016
  Receipt Date: 20121016
  Transmission Date: 20130627
  Serious: No
  Sender: FDA-Public Use
  Company Number: US-PFIZER INC-2012254176

PATIENT
  Age: 12 Month
  Sex: Female
  Weight: 9.52 kg

DRUGS (1)
  1. INFANT ADVIL CONCENTRATED DROPS [Suspect]
     Indication: PYREXIA
     Dosage: 1.875 ml, two to three times a day
     Dates: start: 20121009, end: 20121010

REACTIONS (1)
  - Drug ineffective [Unknown]
